FAERS Safety Report 8012027-1 (Version None)
Quarter: 2011Q4

REPORT INFORMATION
  Report Type: 
  Country: None (occurrence: None)
  Receive Date: 20111228
  Receipt Date: 20111219
  Transmission Date: 20120403
  Serious: Yes (Other)
  Sender: FDA-Public Use
  Company Number: AU-GLAXOSMITHKLINE-B0770740A

PATIENT
  Sex: Male

DRUGS (3)
  1. PREDNISONE TAB [Suspect]
     Indication: MULTIPLE MYELOMA
     Dosage: 135MG PER DAY
     Route: 065
     Dates: start: 20101123
  2. MELPHALAN HYDROCHLORIDE [Suspect]
     Indication: MULTIPLE MYELOMA
     Dosage: 6MG PER DAY
     Route: 065
     Dates: start: 20101123
  3. THALIDOMIDE [Suspect]
     Indication: MULTIPLE MYELOMA
     Dosage: 100MG PER DAY
     Route: 048
     Dates: start: 20101123

REACTIONS (2)
  - ACTINIC KERATOSIS [None]
  - BASAL CELL CARCINOMA [None]
